FAERS Safety Report 10112183 (Version 3)
Quarter: 2014Q2

REPORT INFORMATION
  Report Type: Spontaneous
  Country: GB (occurrence: GB)
  Receive Date: 20140425
  Receipt Date: 20140429
  Transmission Date: 20141212
  Serious: Yes (Other)
  Sender: FDA-Public Use
  Company Number: GB-TEVA-475331ISR

PATIENT
  Age: 46 Year
  Sex: Male

DRUGS (2)
  1. VENLAFAXINE [Suspect]
     Dosage: 150 MILLIGRAM DAILY;
     Route: 048
  2. MYLAN LANSOPRAZOLE [Suspect]

REACTIONS (3)
  - Weight decreased [Unknown]
  - Nonspecific reaction [Unknown]
  - Malabsorption [Unknown]
